FAERS Safety Report 5625117-5 (Version None)
Quarter: 2008Q1

REPORT INFORMATION
  Report Type: 
  Country: None (occurrence: None)
  Receive Date: 20080213
  Receipt Date: 20080208
  Transmission Date: 20080703
  Serious: Yes (Other)
  Sender: FDA-Public Use
  Company Number: GB-BOEHRINGER INGELHEIM GMBH, GERMANY-2008-UK-00621UK

PATIENT
  Sex: Female
  Weight: 68 kg

DRUGS (2)
  1. VIRAMUNE [Suspect]
     Indication: HIV INFECTION
     Route: 048
  2. COMBIVIR [Suspect]
     Indication: HIV INFECTION
     Route: 048

REACTIONS (2)
  - CAESAREAN SECTION [None]
  - ECHOCARDIOGRAM ABNORMAL [None]
